FAERS Safety Report 10338053 (Version 1)
Quarter: 2014Q3

REPORT INFORMATION
  Report Type: Report from Study
  Country: US (occurrence: US)
  Receive Date: 20140724
  Receipt Date: 20140724
  Transmission Date: 20150326
  Serious: Yes (Hospitalization)
  Sender: FDA-Public Use
  Company Number: US-TEVA-496121USA

PATIENT
  Age: 40 Year
  Sex: Female

DRUGS (1)
  1. COPAXONE [Suspect]
     Active Substance: GLATIRAMER ACETATE
     Indication: MULTIPLE SCLEROSIS
     Dates: start: 20140517, end: 20140618

REACTIONS (9)
  - Dyspnoea [Recovering/Resolving]
  - Headache [Recovering/Resolving]
  - Hallucination, auditory [Recovering/Resolving]
  - Feeling hot [Recovering/Resolving]
  - Chest discomfort [Recovering/Resolving]
  - Muscular weakness [Recovering/Resolving]
  - Vomiting [Recovering/Resolving]
  - Hallucination, gustatory [Recovering/Resolving]
  - Muscle spasms [Recovering/Resolving]

NARRATIVE: CASE EVENT DATE: 20140618
